FAERS Safety Report 8899775 (Version 1)
Quarter: 2012Q4

REPORT INFORMATION
  Report Type: 
  Country: US (occurrence: US)
  Receive Date: 20121108
  Receipt Date: 20121108
  Transmission Date: 20130627
  Serious: No
  Sender: FDA-Public Use
  Company Number: US-AMGEN-USASP2012031968

PATIENT
  Age: 37 Year
  Sex: Female
  Weight: 90.71 kg

DRUGS (6)
  1. ENBREL [Suspect]
     Indication: PRODUCT USED FOR UNKNOWN INDICATION
     Dosage: 50 mg, UNK
     Route: 058
  2. FLUOXETINE [Concomitant]
     Dosage: 40 mg, UNK
  3. ACYCLOVIR                          /00587301/ [Concomitant]
  4. MULTIVITAMINS [Concomitant]
  5. ZINC [Concomitant]
     Dosage: 30 mg, UNK
  6. VITAMIN B [Concomitant]

REACTIONS (2)
  - Injection site erythema [Unknown]
  - Injection site pruritus [Unknown]
